FAERS Safety Report 6878731-3 (Version None)
Quarter: 2010Q2

REPORT INFORMATION
  Report Type: 
  Country: None (occurrence: None)
  Receive Date: 20100624
  Receipt Date: 20100510
  Transmission Date: 20101027
  Serious: No
  Sender: FDA-Public Use
  Company Number: DKLU1062253

PATIENT
  Age: 4 Year
  Sex: Female

DRUGS (1)
  1. SABRIL [Suspect]
     Indication: EPILEPSY
     Dosage: 650 MG MILLIGRAM(S), 2 IN 1 D, ORAL
     Route: 048

REACTIONS (3)
  - EAR INFECTION [None]
  - EYELID IRRITATION [None]
  - NASOPHARYNGITIS [None]
